FAERS Safety Report 13240408 (Version 4)
Quarter: 2017Q3

REPORT INFORMATION
  Report Type: Report from Study
  Country: None (occurrence: US)
  Receive Date: 20170216
  Receipt Date: 20170912
  Transmission Date: 20171127
  Serious: Yes (Hospitalization, Other)
  Sender: FDA-Public Use
  Company Number: US-ABBVIE-17K-163-1871210-00

PATIENT
  Age: 65 Year
  Sex: Female
  Weight: 69.92 kg

DRUGS (3)
  1. ATENOLOL. [Concomitant]
     Active Substance: ATENOLOL
     Indication: PRODUCT USED FOR UNKNOWN INDICATION
  2. HUMIRA [Suspect]
     Active Substance: ADALIMUMAB
     Indication: RHEUMATOID ARTHRITIS
     Route: 058
     Dates: start: 201604
  3. METHOTREXATE. [Concomitant]
     Active Substance: METHOTREXATE
     Indication: PRODUCT USED FOR UNKNOWN INDICATION

REACTIONS (16)
  - Rotator cuff syndrome [Recovering/Resolving]
  - Tendon neoplasm [Recovered/Resolved]
  - Lung infection [Recovered/Resolved]
  - Blood pressure increased [Recovered/Resolved]
  - Muscle strain [Recovered/Resolved]
  - Pneumonia [Recovered/Resolved]
  - Lung infection [Unknown]
  - Lethargy [Recovered/Resolved]
  - Rheumatoid arthritis [Not Recovered/Not Resolved]
  - Joint lock [Recovered/Resolved]
  - Tendon rupture [Not Recovered/Not Resolved]
  - Pain in extremity [Unknown]
  - Pain [Recovered/Resolved]
  - Trigger finger [Not Recovered/Not Resolved]
  - Fluid retention [Unknown]
  - Pulmonary pain [Recovered/Resolved]

NARRATIVE: CASE EVENT DATE: 2017
